FAERS Safety Report 9101407 (Version 4)
Quarter: 2015Q1

REPORT INFORMATION
  Report Type: Report from Study
  Country: FR (occurrence: FR)
  Receive Date: 20130215
  Receipt Date: 20150203
  Transmission Date: 20150721
  Serious: Yes (Hospitalization, Other)
  Sender: FDA-Public Use
  Company Number: FR-BAYER-2013-018156

PATIENT
  Age: 64 Year
  Sex: Male
  Weight: 78 kg

DRUGS (5)
  1. DUROGESIC [Concomitant]
     Active Substance: FENTANYL
     Indication: PAIN
     Dosage: TOTAL DAILY DOSE 100
     Route: 058
  2. REGORAFENIB [Suspect]
     Active Substance: REGORAFENIB
     Indication: COLORECTAL CANCER METASTATIC
     Dosage: 160 MG, QD
     Route: 048
     Dates: start: 20121226, end: 20130117
  3. DUROGESIC [Concomitant]
     Active Substance: FENTANYL
     Indication: HEPATIC PAIN
     Dosage: DAILY DOSE 75 PATCH
     Route: 062
     Dates: start: 20121210
  4. LOVENOX [Concomitant]
     Active Substance: ENOXAPARIN SODIUM
     Indication: PAIN
     Dosage: TOTAL DAILY DOSE 0.4 ML
     Route: 058
  5. REGORAFENIB [Suspect]
     Active Substance: REGORAFENIB
     Indication: COLORECTAL CANCER METASTATIC
     Dosage: 80 MG, QD
     Route: 048
     Dates: start: 20130207, end: 20130318

REACTIONS (6)
  - Trismus [Recovered/Resolved]
  - Dysphonia [Recovered/Resolved]
  - Mucosal inflammation [Recovered/Resolved]
  - Haemolysis [Recovered/Resolved]
  - Asthenia [Recovered/Resolved]
  - Somnolence [Recovered/Resolved]

NARRATIVE: CASE EVENT DATE: 20130110
